FAERS Safety Report 5476730-X (Version None)
Quarter: 2007Q4

REPORT INFORMATION
  Report Type: 
  Country: None (occurrence: None)
  Receive Date: 20071003
  Receipt Date: 20071003
  Transmission Date: 20080405
  Serious: No
  Sender: FDA-Public Use
  Company Number: None

PATIENT
  Age: 85 Year
  Sex: Female
  Weight: 68.0396 kg

DRUGS (2)
  1. ALLOPURINOL [Suspect]
     Indication: GOUT
     Dosage: 300MG TAB 1 PER DO MOUTH
     Route: 048
     Dates: start: 20070907
  2. ALLOPURINOL [Suspect]
     Indication: GOUT
     Dosage: 300MG TAB 1 PER DO MOUTH
     Route: 048
     Dates: start: 20071007

REACTIONS (13)
  - CHAPPED LIPS [None]
  - DYSPHONIA [None]
  - EYE PRURITUS [None]
  - HYPERSENSITIVITY [None]
  - LIP HAEMORRHAGE [None]
  - OEDEMA MOUTH [None]
  - OEDEMA PERIPHERAL [None]
  - ORAL INTAKE REDUCED [None]
  - ORAL PAIN [None]
  - PAIN OF SKIN [None]
  - PHARYNGOLARYNGEAL PAIN [None]
  - PRURITUS [None]
  - SCAB [None]
